FAERS Safety Report 25902676 (Version 2)
Quarter: 2025Q4

REPORT INFORMATION
  Report Type: Spontaneous
  Country: US (occurrence: US)
  Receive Date: 20251009
  Receipt Date: 20251107
  Transmission Date: 20260119
  Serious: No
  Sender: TAKEDA
  Company Number: US-TAKEDA-2025TUS087793

PATIENT
  Age: 34 Year
  Sex: Female
  Weight: 74 kg

DRUGS (1)
  1. ADZYNMA [Suspect]
     Active Substance: ADAMTS13, RECOMBINANT-KRHN
     Indication: Thrombotic thrombocytopenic purpura
     Dosage: UNK UNK, Q2WEEKS
     Dates: start: 20251020

REACTIONS (3)
  - Insurance issue [Unknown]
  - Product use issue [Unknown]
  - Pregnancy [Unknown]

NARRATIVE: CASE EVENT DATE: 20251103
